FAERS Safety Report 19820259 (Version 1)
Quarter: 2021Q3

REPORT INFORMATION
  Report Type: Spontaneous
  Country: US (occurrence: US)
  Receive Date: 20210911
  Receipt Date: 20210911
  Transmission Date: 20211014
  Serious: Yes (Other)
  Sender: FDA-Public Use
  Company Number: None

PATIENT
  Age: 59 Year
  Sex: Female
  Weight: 54.45 kg

DRUGS (10)
  1. ALBUTEROL. [Concomitant]
     Active Substance: ALBUTEROL
  2. ALLEGRA [Concomitant]
     Active Substance: FEXOFENADINE HYDROCHLORIDE
  3. VALIUM [Concomitant]
     Active Substance: DIAZEPAM
  4. IMODIUM [Concomitant]
     Active Substance: LOPERAMIDE HYDROCHLORIDE
  5. SINGULAIR [Concomitant]
     Active Substance: MONTELUKAST SODIUM
  6. ASMANEX [Concomitant]
     Active Substance: MOMETASONE FUROATE
  7. HYDROXYZINE [Concomitant]
     Active Substance: HYDROXYZINE HYDROCHLORIDE
  8. REGEN?COV [Suspect]
     Active Substance: CASIRIVIMAB\IMDEVIMAB
     Indication: COVID-19
     Dosage: ?          QUANTITY:4 INJECTION(S);?
     Dates: start: 20210908, end: 20210908
  9. TYLENOL [Concomitant]
     Active Substance: ACETAMINOPHEN
  10. VICKS [Concomitant]

REACTIONS (4)
  - Headache [None]
  - Frequent bowel movements [None]
  - Hypertension [None]
  - Pyrexia [None]

NARRATIVE: CASE EVENT DATE: 20210910
